FAERS Safety Report 5162681-7 (Version None)
Quarter: 2006Q4

REPORT INFORMATION
  Report Type: 
  Country: None (occurrence: None)
  Receive Date: 20061201
  Receipt Date: 20061026
  Transmission Date: 20070319
  Serious: Yes (Other)
  Sender: FDA-Public Use
  Company Number: DEWYE342326OCT06

PATIENT
  Age: 41 Year
  Sex: Female

DRUGS (4)
  1. ENBREL [Suspect]
     Indication: PSORIATIC ARTHROPATHY
     Dosage: 50 MG WEEKLY
     Route: 058
     Dates: start: 20051001
  2. LANTAREL [Suspect]
     Indication: PSORIATIC ARTHROPATHY
     Route: 051
     Dates: start: 20050701, end: 20061103
  3. PREDNISOLONE [Concomitant]
     Indication: PSORIATIC ARTHROPATHY
     Route: 048
  4. ARCOXIA [Concomitant]
     Indication: PSORIATIC ARTHROPATHY
     Dosage: 90 MG PER DAY
     Route: 048

REACTIONS (10)
  - CONDITION AGGRAVATED [None]
  - COSTOCHONDRITIS [None]
  - DRUG INEFFECTIVE [None]
  - DYSPNOEA [None]
  - INFECTION [None]
  - LUNG DISORDER [None]
  - MUSCULOSKELETAL CHEST PAIN [None]
  - PSORIATIC ARTHROPATHY [None]
  - RHEUMATOID NODULE [None]
  - SWELLING [None]
